FAERS Safety Report 5904150-X (Version None)
Quarter: 2008Q4

REPORT INFORMATION
  Report Type: 
  Country: None (occurrence: None)
  Receive Date: 20081001
  Receipt Date: 20080923
  Transmission Date: 20090506
  Serious: Yes (Hospitalization, Other)
  Sender: FDA-Public Use
  Company Number: GB-RANBAXY-2008RR-17108

PATIENT
  Age: 80 Year
  Sex: Female

DRUGS (6)
  1. PRAVASTATIN SODIUM [Suspect]
     Indication: HYPERCHOLESTEROLAEMIA
     Dosage: 20 MG, QD
  2. AMITRIPTYLINE HCL [Suspect]
     Indication: DEPRESSION
     Dosage: 50 MG, QD
  3. ARTHROTEC [Concomitant]
     Indication: ARTHRITIS
  4. ASPIRIN [Concomitant]
  5. ATENOLOL [Concomitant]
     Indication: HYPERTENSION
  6. LEVOTHYROXINE SODIUM [Concomitant]
     Indication: HYPOTHYROIDISM

REACTIONS (13)
  - ABDOMINAL DISCOMFORT [None]
  - ANAEMIA [None]
  - ANOREXIA [None]
  - COLITIS [None]
  - DEHYDRATION [None]
  - DIARRHOEA [None]
  - DRUG INTERACTION [None]
  - FIBROSIS [None]
  - LARGE INTESTINAL ULCER [None]
  - MUCOSAL INFLAMMATION [None]
  - PULMONARY EMBOLISM [None]
  - TENDERNESS [None]
  - WEIGHT DECREASED [None]
